FAERS Safety Report 5978961-9 (Version None)
Quarter: 2008Q4

REPORT INFORMATION
  Report Type: 
  Country: None (occurrence: None)
  Receive Date: 20081204
  Receipt Date: 20080124
  Transmission Date: 20090506
  Serious: No
  Sender: FDA-Public Use
  Company Number: US-ABBOTT-08P-163-0435409-00

PATIENT
  Sex: Male
  Weight: 108.9 kg

DRUGS (8)
  1. TRICOR [Suspect]
     Indication: BLOOD TRIGLYCERIDES INCREASED
     Route: 048
     Dates: start: 20050101
  2. PIOGLITAZONE [Concomitant]
     Indication: TYPE 2 DIABETES MELLITUS
     Route: 048
  3. DEPAKOTE ER [Concomitant]
     Indication: MIGRAINE
     Route: 048
  4. ALPRAZOLAM [Concomitant]
     Indication: PANIC ATTACK
     Route: 048
  5. ACETYLSALICYLIC ACID SRT [Concomitant]
     Indication: ATRIAL FIBRILLATION
     Route: 048
  6. METOPROLOL SUCCINATE [Concomitant]
     Indication: VASOPRESSIVE THERAPY
     Route: 048
  7. WARFARIN SODIUM [Concomitant]
     Indication: ATRIAL FIBRILLATION
     Route: 048
  8. FLECAINIDE ACETATE [Concomitant]
     Indication: ARRHYTHMIA PROPHYLAXIS
     Route: 048

REACTIONS (2)
  - BLOOD TRIGLYCERIDES ABNORMAL [None]
  - MEDICATION RESIDUE [None]
